FAERS Safety Report 20521098 (Version 1)
Quarter: 2022Q1

REPORT INFORMATION
  Report Type: Report from Study
  Country: US (occurrence: US)
  Receive Date: 20220226
  Receipt Date: 20220226
  Transmission Date: 20220423
  Serious: Yes (Hospitalization)
  Sender: FDA-Public Use
  Company Number: US-ABBVIE-22K-163-4260499-00

PATIENT
  Sex: Female

DRUGS (2)
  1. VENCLEXTA [Suspect]
     Active Substance: VENETOCLAX
     Indication: Acute myeloid leukaemia
     Dosage: TAKE 2 TABLETS EVERY DAY WITH FOOD AND WATER FOR 14 DAYS EVERY 28 DAYS
     Route: 048
  2. VENCLEXTA [Suspect]
     Active Substance: VENETOCLAX
     Indication: Acute myeloid leukaemia recurrent
     Dosage: TAKE 6 TABLETS ONCE A DAY WITH MEALS AND WATER AT APPROXIMATELY THE SAME TIME EACH DAY
     Route: 048

REACTIONS (3)
  - Chemotherapy [Unknown]
  - Off label use [Unknown]
  - Gingival swelling [Unknown]
